FAERS Safety Report 15506213 (Version 4)
Quarter: 2018Q4

REPORT INFORMATION
  Report Type: Spontaneous
  Country: PL (occurrence: PL)
  Receive Date: 20181016
  Receipt Date: 20181113
  Transmission Date: 20190205
  Serious: Yes (Hospitalization, Other)
  Sender: FDA-Public Use
  Company Number: PL-MYLANLABS-2018M1075090

PATIENT
  Age: 48 Year
  Sex: Female

DRUGS (12)
  1. CAPTOPRIL. [Concomitant]
     Active Substance: CAPTOPRIL
     Indication: PRODUCT USED FOR UNKNOWN INDICATION
  2. CAPTOPRIL. [Concomitant]
     Active Substance: CAPTOPRIL
     Indication: HYPERTENSIVE CRISIS
     Dosage: UNK
     Route: 065
  3. URAPIDIL [Concomitant]
     Active Substance: URAPIDIL
     Indication: PRODUCT USED FOR UNKNOWN INDICATION
  4. METOPROLOL. [Suspect]
     Active Substance: METOPROLOL
     Indication: HYPERTENSION
     Dosage: 25 MG, QD,(25 MG 1 X DAY - IN THE MORNING)
     Route: 048
  5. LACIDIPINE [Suspect]
     Active Substance: LACIDIPINE
     Dosage: 2 MG, DAILY
     Route: 048
  6. LACIDIPINE [Suspect]
     Active Substance: LACIDIPINE
     Indication: HYPERTENSION
     Dosage: 4 MG, QD,(2 MG TWICE A DAY, INCREASE IN THE EVENING DOSE TO 4 MG)
     Route: 048
  7. INDAPAMIDE. [Suspect]
     Active Substance: INDAPAMIDE
     Indication: HYPERTENSION
     Dosage: 1.5 MG, QD,(1.5 MG 1 X DAY - IN THE MORNING)
     Route: 065
  8. FUROSEMIDE. [Concomitant]
     Active Substance: FUROSEMIDE
     Indication: HYPERTENSIVE CRISIS
     Dosage: UNK
     Route: 065
  9. RAMIPRIL. [Suspect]
     Active Substance: RAMIPRIL
     Indication: HYPERTENSION
     Dosage: 5 MG, QD,(5 MG 1 X DAY - IN THE EVENING)
     Route: 048
  10. URAPIDIL [Concomitant]
     Active Substance: URAPIDIL
     Indication: HYPERTENSIVE CRISIS
     Dosage: UNK
     Route: 065
  11. FUROSEMIDE. [Concomitant]
     Active Substance: FUROSEMIDE
     Indication: PRODUCT USED FOR UNKNOWN INDICATION
  12. LACIDIPINE [Suspect]
     Active Substance: LACIDIPINE
     Dosage: 4 MG, IN THE EVENING
     Route: 048

REACTIONS (2)
  - Treatment noncompliance [Unknown]
  - Treatment failure [Unknown]
